FAERS Safety Report 13936204 (Version 1)
Quarter: 2017Q3

REPORT INFORMATION
  Report Type: Spontaneous
  Country: US (occurrence: US)
  Receive Date: 20170905
  Receipt Date: 20170905
  Transmission Date: 20171127
  Serious: Yes (Other)
  Sender: FDA-Public Use
  Company Number: None

PATIENT
  Age: 66 Year
  Sex: Female
  Weight: 90 kg

DRUGS (13)
  1. FLONASE [Concomitant]
     Active Substance: FLUTICASONE PROPIONATE
  2. ATIVAN [Concomitant]
     Active Substance: LORAZEPAM
  3. SYSTANCE BALANCE DROPS [Concomitant]
  4. ZOFRAN [Concomitant]
     Active Substance: ONDANSETRON HYDROCHLORIDE
  5. LEXAPRO [Concomitant]
     Active Substance: ESCITALOPRAM OXALATE
  6. COLACE [Concomitant]
     Active Substance: DOCUSATE SODIUM
  7. PRO AIR RESCUE [Concomitant]
  8. VITAMIN B COMPLEX [Concomitant]
     Active Substance: CYANOCOBALAMIN\DEXPANTHENOL\NIACINAMIDE\PYRIDOXINE HYDROCHLORIDE\RIBOFLAVIN 5^-PHOSPHATE SODIUM\THIAMINE HYDROCHLORIDE\VITAMIN B COMPLEX
  9. CLARITIN [Concomitant]
     Active Substance: LORATADINE
  10. PEPCID [Concomitant]
     Active Substance: FAMOTIDINE
  11. CENTRUM SILVER [Concomitant]
     Active Substance: MINERALS\VITAMINS
  12. MIRALAX [Suspect]
     Active Substance: POLYETHYLENE GLYCOL 3350
     Indication: GASTROINTESTINAL DISORDER
     Dosage: 1 CAPFUL; AT BEDTIME ORAL?
     Route: 048
     Dates: start: 20170821, end: 20170905
  13. NAPROXEN DR/EC [Concomitant]

REACTIONS (3)
  - Hypertension [None]
  - Palpitations [None]
  - Malaise [None]

NARRATIVE: CASE EVENT DATE: 20170901
